FAERS Safety Report 23896409 (Version 1)
Quarter: 2024Q2

REPORT INFORMATION
  Report Type: Spontaneous
  Country: US (occurrence: None)
  Receive Date: 20240523
  Receipt Date: 20240523
  Transmission Date: 20240716
  Serious: Yes (Life-Threatening, Hospitalization, Disabling)
  Sender: FDA-Public Use
  Company Number: None

PATIENT
  Age: 66 Year
  Sex: Male
  Weight: 63.5 kg

DRUGS (1)
  1. AMIODARONE HYDROCHLORIDE [Suspect]
     Active Substance: AMIODARONE HYDROCHLORIDE

REACTIONS (11)
  - Dyspnoea [None]
  - Pulmonary oedema [None]
  - Scrotal oedema [None]
  - Penile oedema [None]
  - Furuncle [None]
  - Decubitus ulcer [None]
  - Generalised oedema [None]
  - Hypotension [None]
  - Syncope [None]
  - Wheezing [None]
  - Lacrimation increased [None]

NARRATIVE: CASE EVENT DATE: 20240427
